FAERS Safety Report 13648556 (Version 4)
Quarter: 2017Q4

REPORT INFORMATION
  Report Type: Spontaneous
  Country: US (occurrence: US)
  Receive Date: 20170613
  Receipt Date: 20171013
  Transmission Date: 20180320
  Serious: No
  Sender: FDA-Public Use
  Company Number: US-SHIRE-US201712968

PATIENT
  Age: 71 Year
  Sex: Female

DRUGS (2)
  1. XIIDRA [Suspect]
     Active Substance: LIFITEGRAST
     Indication: PRODUCT USED FOR UNKNOWN INDICATION
     Dosage: 1 GTT (BOTH EYES), 2X/DAY:BID
     Route: 047
     Dates: start: 20170608
  2. SYSTANE (HYPROMELLOSE 2910 (4000 MPA.S)) [Concomitant]
     Active Substance: HYPROMELLOSE 2910 (4000 MPA.S)
     Indication: PRODUCT USED FOR UNKNOWN INDICATION
     Dosage: UNK, 1X/DAY:QD (AT NIGHT)
     Route: 047

REACTIONS (5)
  - Wrong technique in product usage process [Unknown]
  - Product container issue [Unknown]
  - Product taste abnormal [Unknown]
  - Dysgeusia [Unknown]
  - Instillation site pain [Unknown]

NARRATIVE: CASE EVENT DATE: 201706
